FAERS Safety Report 16694806 (Version 1)
Quarter: 2019Q3

REPORT INFORMATION
  Report Type: Spontaneous
  Country: US (occurrence: US)
  Receive Date: 20190812
  Receipt Date: 20190812
  Transmission Date: 20191004
  Serious: Yes (Other)
  Sender: FDA-Public Use
  Company Number: US-BIOMARINAP-US-2019-125050

PATIENT
  Age: 52 Year
  Sex: Male

DRUGS (2)
  1. PALYNZIQ [Suspect]
     Active Substance: PEGVALIASE-PQPZ
     Indication: PRODUCT USED FOR UNKNOWN INDICATION
     Dosage: 20 MILLIGRAM, QD
     Route: 058
  2. PALYNZIQ [Suspect]
     Active Substance: PEGVALIASE-PQPZ
     Dosage: UNK
     Route: 058
     Dates: start: 20190401

REACTIONS (5)
  - Pharyngeal swelling [Unknown]
  - Pruritus generalised [Unknown]
  - Swollen tongue [Unknown]
  - Eye swelling [Unknown]
  - Nervousness [Unknown]

NARRATIVE: CASE EVENT DATE: 20190802
